FAERS Safety Report 18594077 (Version 1)
Quarter: 2020Q4

REPORT INFORMATION
  Report Type: Spontaneous
  Country: JP (occurrence: JP)
  Receive Date: 20201209
  Receipt Date: 20201209
  Transmission Date: 20210114
  Serious: Yes (Hospitalization, Other)
  Sender: FDA-Public Use
  Company Number: NVSJ2020JP013260

PATIENT
  Age: 73 Year
  Sex: Female

DRUGS (4)
  1. DROXIDOPA [Concomitant]
     Active Substance: DROXIDOPA
     Indication: PARKINSON^S DISEASE
     Dosage: UNK, 6 TABLETS IN 3 DIVIDED DOSES
     Route: 048
  2. STALEVO [Concomitant]
     Active Substance: CARBIDOPA\ENTACAPONE\LEVODOPA
     Indication: PARKINSON^S DISEASE
     Dosage: UNK
     Route: 065
  3. SYMMETREL [Suspect]
     Active Substance: AMANTADINE HYDROCHLORIDE
     Indication: PARKINSON^S DISEASE
     Dosage: UNK, 4. 5 TABLETS IN 3 DIVIDED DOSES
     Route: 048
  4. NEUPRO [Concomitant]
     Active Substance: ROTIGOTINE
     Indication: PARKINSON^S DISEASE
     Dosage: UNK, TWO PATCHES
     Route: 061

REACTIONS (1)
  - Femoral neck fracture [Unknown]
